FAERS Safety Report 4361233-6 (Version None)
Quarter: 2004Q2

REPORT INFORMATION
  Report Type: 
  Country: None (occurrence: None)
  Receive Date: 20040519
  Receipt Date: 20040511
  Transmission Date: 20050107
  Serious: Yes (Other)
  Sender: FDA-Public Use
  Company Number: AT-2004-025309

PATIENT
  Age: 43 Year
  Sex: Female

DRUGS (2)
  1. MIRENA [Suspect]
     Indication: CONTRACEPTION
     Dosage: 20 UG/DAY, CONT. INTRA-UTERINE
     Route: 015
     Dates: start: 19990101, end: 20040422
  2. MIRENA [Suspect]
     Indication: CONTRACEPTION
     Dosage: 20 UG/DAY, CONT. INTRA-UTERINE
     Route: 015
     Dates: start: 20040422, end: 20040501

REACTIONS (1)
  - BREAST CANCER [None]
